FAERS Safety Report 8713354 (Version 2)
Quarter: 2012Q4

REPORT INFORMATION
  Report Type: 
  Country: GB (occurrence: GB)
  Receive Date: 20120808
  Receipt Date: 20120831
  Transmission Date: 20130627
  Serious: Yes (Hospitalization, Other)
  Sender: FDA-Public Use
  Company Number: GB-BAUSCH-BL-2012-000316

PATIENT
  Age: 83 Year
  Sex: Female

DRUGS (4)
  1. PREDNISOLONE [Suspect]
     Indication: LOWER RESPIRATORY TRACT INFECTION
  2. AMOXICILLIN [Concomitant]
     Indication: PRODUCT USED FOR UNKNOWN INDICATION
  3. SALBUTAMOL SULFATE [Concomitant]
     Indication: PRODUCT USED FOR UNKNOWN INDICATION
  4. NO DRUG NAME [Concomitant]
     Indication: BLOOD PRESSURE

REACTIONS (5)
  - Blood pressure systolic increased [Unknown]
  - Electrocardiogram abnormal [Unknown]
  - Chronic obstructive pulmonary disease [Unknown]
  - Sleep disorder [Unknown]
  - Throat irritation [Unknown]
